FAERS Safety Report 19062402 (Version 1)
Quarter: 2021Q1

REPORT INFORMATION
  Report Type: Spontaneous
  Country: CN (occurrence: CN)
  Receive Date: 20210326
  Receipt Date: 20210326
  Transmission Date: 20210420
  Serious: Yes (Hospitalization)
  Sender: FDA-Public Use
  Company Number: CN-ELI_LILLY_AND_COMPANY-CN201901011790

PATIENT
  Age: 65 Year
  Sex: Female
  Weight: 46 kg

DRUGS (2)
  1. HUMULIN 70/30 [Suspect]
     Active Substance: INSULIN HUMAN
     Indication: TYPE 2 DIABETES MELLITUS
     Dosage: 10 U, BID (MORNING AND NIGHT)
     Route: 058
     Dates: start: 2006
  2. HUMULIN 70/30 [Suspect]
     Active Substance: INSULIN HUMAN
     Dosage: 18 U, BID (MORNING AND NIGHT)
     Route: 058

REACTIONS (6)
  - Body height decreased [Unknown]
  - Diabetic foot [Unknown]
  - Visual impairment [Unknown]
  - Oedema peripheral [Unknown]
  - Weight decreased [Unknown]
  - Hypoacusis [Unknown]
